FAERS Safety Report 22602046 (Version 1)
Quarter: 2023Q2

REPORT INFORMATION
  Report Type: Report from Study
  Country: US (occurrence: US)
  Receive Date: 20230614
  Receipt Date: 20230614
  Transmission Date: 20230721
  Serious: Yes (Hospitalization)
  Sender: FDA-Public Use
  Company Number: US-GILEAD-2023-0632574

PATIENT
  Age: 39 Year
  Sex: Female

DRUGS (14)
  1. AZTREONAM LYSINE [Suspect]
     Active Substance: AZTREONAM LYSINE
     Indication: Cystic fibrosis
     Dosage: 75 MG, TID,28 DAYS ON 28 DAYS OFF
     Route: 055
     Dates: start: 20151031
  2. ABILIFY [Concomitant]
     Active Substance: ARIPIPRAZOLE
  3. ADVAIR HFA [Concomitant]
     Active Substance: FLUTICASONE PROPIONATE\SALMETEROL XINAFOATE
  4. BUPROPION HYDROCHLORIDE [Concomitant]
     Active Substance: BUPROPION HYDROCHLORIDE
  5. CIPROFLOXACIN [Concomitant]
     Active Substance: CIPROFLOXACIN
  6. CLONAZEPAM [Concomitant]
     Active Substance: CLONAZEPAM
  7. ELIQUIS [Concomitant]
     Active Substance: APIXABAN
  8. HYDROMORPHONE HYDROCHLORIDE [Concomitant]
     Active Substance: HYDROMORPHONE HYDROCHLORIDE
  9. PULMOZYME [Concomitant]
     Active Substance: DORNASE ALFA
  10. SERTRALINE [Concomitant]
     Active Substance: SERTRALINE HYDROCHLORIDE
  11. SODIUM CHLORIDE [Concomitant]
     Active Substance: SODIUM CHLORIDE
  12. TOBI PODHALER [Concomitant]
     Active Substance: TOBRAMYCIN
  13. TRIKAFTA [Concomitant]
     Active Substance: ELEXACAFTOR\IVACAFTOR\TEZACAFTOR
  14. URSODIOL [Concomitant]
     Active Substance: URSODIOL

REACTIONS (5)
  - Lung disorder [Unknown]
  - Respiratory symptom [Unknown]
  - Dyspnoea [Unknown]
  - Cough [Unknown]
  - Secretion discharge [Unknown]
